FAERS Safety Report 13561741 (Version 1)
Quarter: 2017Q2

REPORT INFORMATION
  Report Type: Spontaneous
  Country: FR (occurrence: FR)
  Receive Date: 20170518
  Receipt Date: 20170518
  Transmission Date: 20170830
  Serious: Yes (Other)
  Sender: FDA-Public Use
  Company Number: FR-MERCK KGAA-2020965

PATIENT
  Age: 56 Year
  Sex: Female
  Weight: 80 kg

DRUGS (1)
  1. NOVOTHYROX [Suspect]
     Active Substance: LEVOTHYROXINE SODIUM
     Indication: AUTOIMMUNE THYROIDITIS
     Dates: start: 201704

REACTIONS (9)
  - Urticaria [Recovering/Resolving]
  - Angioedema [Recovering/Resolving]
  - Arthralgia [Recovering/Resolving]
  - Peripheral swelling [Recovering/Resolving]
  - Pain [Recovering/Resolving]
  - Pain in extremity [Recovering/Resolving]
  - Allergic oedema [Recovering/Resolving]
  - Dysphagia [Recovering/Resolving]
  - Dry skin [Recovering/Resolving]

NARRATIVE: CASE EVENT DATE: 2017
